FAERS Safety Report 26067183 (Version 1)
Quarter: 2025Q4

REPORT INFORMATION
  Report Type: Report from Study
  Country: CO (occurrence: CO)
  Receive Date: 20251119
  Receipt Date: 20251119
  Transmission Date: 20260117
  Serious: Yes (Hospitalization, Other)
  Sender: ABBVIE
  Company Number: CO-JNJFOC-20250904009

PATIENT
  Age: 76 Year
  Sex: Female
  Weight: 64 kg

DRUGS (2)
  1. IMBRUVICA [Suspect]
     Active Substance: IBRUTINIB
     Indication: Mantle cell lymphoma
     Route: 048
     Dates: start: 20240613, end: 202508
  2. VALSARTAN [Concomitant]
     Active Substance: VALSARTAN
     Indication: Hypertension

REACTIONS (5)
  - Respiratory failure [Unknown]
  - Lymphadenopathy [Unknown]
  - Drug ineffective [Unknown]
  - Cardiac failure [Unknown]
  - Renal failure [Unknown]

NARRATIVE: CASE EVENT DATE: 20250829
